FAERS Safety Report 23575824 (Version 1)
Quarter: 2024Q1

REPORT INFORMATION
  Report Type: Report from Study
  Country: AU (occurrence: AU)
  Receive Date: 20240228
  Receipt Date: 20240228
  Transmission Date: 20240410
  Serious: Yes (Hospitalization, Other)
  Sender: FDA-Public Use
  Company Number: AU-002147023-NVSC2024AU040386

PATIENT
  Sex: Female

DRUGS (1)
  1. COSENTYX [Suspect]
     Active Substance: SECUKINUMAB
     Indication: Hidradenitis
     Dosage: 300 MG, QW (0,1,2,3,4,5 THEN 300 MG QMO)
     Route: 065

REACTIONS (4)
  - Skin ulcer [Unknown]
  - Osteomyelitis [Unknown]
  - Diabetes mellitus [Unknown]
  - Product use issue [Unknown]
